FAERS Safety Report 7464802-X (Version None)
Quarter: 2011Q2

REPORT INFORMATION
  Report Type: 
  Country: None (occurrence: None)
  Receive Date: 20110509
  Receipt Date: 20110411
  Transmission Date: 20111010
  Serious: Yes (Life-Threatening, Hospitalization)
  Sender: FDA-Public Use
  Company Number: US-BAYER-2011-013544

PATIENT
  Age: 33 Year
  Sex: Female
  Weight: 68.027 kg

DRUGS (16)
  1. YASMIN [Suspect]
     Indication: PRODUCT USED FOR UNKNOWN INDICATION
     Dates: start: 20061101
  2. SINGULAIR [Concomitant]
  3. LEXAPRO [Concomitant]
     Indication: HORMONE LEVEL ABNORMAL
  4. EFFEXOR [Concomitant]
     Indication: DEPRESSION
  5. LASIX [Concomitant]
     Indication: OEDEMA
     Dosage: UNK
     Dates: start: 20061006
  6. ROPINIROLE [Concomitant]
     Indication: RESTLESS LEGS SYNDROME
  7. LEVOTHYROXINE SODIUM [Concomitant]
     Indication: HYPOTHYROIDISM
     Dosage: 00125 MG, UNK
     Route: 048
     Dates: start: 19930101
  8. POTASSIUM CHLORIDE W/SODIUM CHLORIDE [Concomitant]
     Dosage: UNK
     Dates: start: 20061006
  9. NORTRIPTYLINE [Concomitant]
     Dosage: UNK
     Dates: start: 20030101, end: 20070101
  10. LEXAPRO [Concomitant]
     Indication: MIGRAINE
  11. EFFEXOR [Concomitant]
     Indication: MIGRAINE
     Dosage: 375 MG, QD
     Dates: start: 20080101
  12. VITAMIN C [Concomitant]
  13. ALBUTEROL [Concomitant]
     Indication: ASTHMA
     Dosage: UNK
     Dates: start: 20050101
  14. IMITREX [Concomitant]
     Indication: MIGRAINE
     Dosage: UNK
     Dates: start: 19920101
  15. LAMOTRIGINE [Concomitant]
     Indication: MIGRAINE
  16. TOPAMAX [Concomitant]
     Dosage: 25 MG, UNK

REACTIONS (7)
  - PAIN IN EXTREMITY [None]
  - FEAR [None]
  - DEEP VEIN THROMBOSIS [None]
  - PAIN [None]
  - VISUAL ACUITY REDUCED [None]
  - OEDEMA [None]
  - ANXIETY [None]
